FAERS Safety Report 7424257-8 (Version None)
Quarter: 2011Q2

REPORT INFORMATION
  Report Type: 
  Country: None (occurrence: None)
  Receive Date: 20110419
  Receipt Date: 20110411
  Transmission Date: 20111010
  Serious: Yes (Hospitalization, Other)
  Sender: FDA-Public Use
  Company Number: US-BRISTOL-MYERS SQUIBB COMPANY-15554009

PATIENT

DRUGS (9)
  1. TRIMETHOPRIM + SULFAMETHOXAZOLE [Concomitant]
     Dosage: MONDAY, WEDNESDAY,FRIDAY
  2. IRINOTECAN [Suspect]
     Indication: ASTROCYTOMA
     Dosage: ACTUAL DOSE:11 MG;CYCLE:1 1ST PHASE 17DEC2010 2ND PHASE 31JAN2011
     Route: 042
     Dates: start: 20101026, end: 20110207
  3. ONDANSETRON [Concomitant]
     Indication: NAUSEA
     Dosage: Q8H
  4. ALBUTEROL [Concomitant]
  5. OXYCODONE [Concomitant]
     Dosage: Q6H
  6. PULMICORT [Concomitant]
  7. LOPERAMIDE [Concomitant]
     Indication: DIARRHOEA
     Dosage: PRN
  8. CETUXIMAB [Suspect]
     Indication: ASTROCYTOMA
     Dosage: ACTUAL DOSE:170 MG;CYC,LOT:08100469A,EXP DATE:JAN12 1ST PHASE 17DEC2010 2ND PHASE 31JAN2011
     Route: 042
     Dates: start: 20101026, end: 20110328
  9. BACTRIM [Concomitant]
     Dates: start: 20101031

REACTIONS (2)
  - LYMPHOPENIA [None]
  - DECREASED APPETITE [None]
